FAERS Safety Report 9271256 (Version 1)
Quarter: 2013Q2

REPORT INFORMATION
  Report Type: Spontaneous
  Country: KR (occurrence: KR)
  Receive Date: 20130506
  Receipt Date: 20130506
  Transmission Date: 20140414
  Serious: Yes (Other)
  Sender: FDA-Public Use
  Company Number: KR-JNJFOC-20130416267

PATIENT
  Age: 9 Year
  Sex: Male

DRUGS (1)
  1. TYLENOL SUSPENSION LIQUID [Suspect]
     Indication: PYREXIA
     Route: 048
     Dates: start: 2012

REACTIONS (5)
  - Kawasaki^s disease [Unknown]
  - Hepatic enzyme increased [Unknown]
  - Vomiting [Unknown]
  - Platelet count decreased [Unknown]
  - Drug ineffective [Unknown]
